FAERS Safety Report 6420441-0 (Version None)
Quarter: 2009Q4

REPORT INFORMATION
  Report Type: 
  Country: None (occurrence: None)
  Receive Date: 20091021
  Receipt Date: 20090812
  Transmission Date: 20100525
  Serious: No
  Sender: FDA-Public Use
  Company Number: ALL1-2009-02303

PATIENT
  Age: 39 Year
  Sex: Female

DRUGS (4)
  1. VYVANSE [Suspect]
     Dosage: 60 MG, 1X/DAY:QD, ORAL : 70 MG, 1X/DAY:QD, ORAL : 50 MG, ONE DOSE, ORAL
     Route: 048
     Dates: start: 20090401, end: 20090601
  2. VYVANSE [Suspect]
     Dosage: 60 MG, 1X/DAY:QD, ORAL : 70 MG, 1X/DAY:QD, ORAL : 50 MG, ONE DOSE, ORAL
     Route: 048
     Dates: start: 20090601, end: 20090801
  3. VYVANSE [Suspect]
     Dosage: 60 MG, 1X/DAY:QD, ORAL : 70 MG, 1X/DAY:QD, ORAL : 50 MG, ONE DOSE, ORAL
     Route: 048
     Dates: start: 20090801, end: 20090801
  4. VYVANSE [Suspect]
     Dosage: 60 MG, 1X/DAY:QD, ORAL : 70 MG, 1X/DAY:QD, ORAL : 50 MG, ONE DOSE, ORAL
     Route: 048
     Dates: start: 20090801

REACTIONS (2)
  - DIZZINESS [None]
  - DRUG DIVERSION [None]
